FAERS Safety Report 6557160-6 (Version None)
Quarter: 2010Q1

REPORT INFORMATION
  Report Type: 
  Country: None (occurrence: None)
  Receive Date: 20100127
  Receipt Date: 20100127
  Transmission Date: 20100710
  Serious: No
  Sender: FDA-Public Use
  Company Number: None

PATIENT
  Age: 79 Year
  Sex: Female
  Weight: 95.2554 kg

DRUGS (2)
  1. TYLENOL PM EXTRA STRENGTH TYLENOL [Suspect]
     Indication: ARTHRITIS
     Dates: start: 20100105, end: 20100116
  2. TYLENOL PM EXTRA STRENGTH TYLENOL [Suspect]
     Indication: SOMNOLENCE
     Dates: start: 20100105, end: 20100116

REACTIONS (8)
  - ABDOMINAL PAIN UPPER [None]
  - BEDRIDDEN [None]
  - DIARRHOEA [None]
  - DIZZINESS [None]
  - NAUSEA [None]
  - PRODUCT QUALITY ISSUE [None]
  - RETCHING [None]
  - VOMITING [None]
